FAERS Safety Report 24289293 (Version 1)
Quarter: 2024Q3

REPORT INFORMATION
  Report Type: Spontaneous
  Country: NL (occurrence: NL)
  Receive Date: 20240906
  Receipt Date: 20240906
  Transmission Date: 20241016
  Serious: Yes (Other)
  Sender: AUROBINDO
  Company Number: NL-LRB-00999162

PATIENT
  Age: 22 Year
  Sex: Female
  Weight: 52 kg

DRUGS (2)
  1. METRONIDAZOLE [Suspect]
     Active Substance: METRONIDAZOLE
     Indication: Pelvic inflammatory disease
     Dosage: 500 MILLIGRAM, TWO TIMES A DAY
     Route: 065
     Dates: start: 20240815
  2. OFLOXACIN [Suspect]
     Active Substance: OFLOXACIN
     Indication: Pelvic inflammatory disease
     Dosage: 400 MILLIGRAM, TWO TIMES A DAY (1 PIECE TWICE A DAY)
     Route: 065
     Dates: start: 20240815, end: 20240816

REACTIONS (12)
  - Hallucination [Recovered/Resolved]
  - Affect lability [Recovered/Resolved]
  - Constipation [Recovered/Resolved]
  - Dysgeusia [Recovered/Resolved]
  - Fatigue [Recovered/Resolved]
  - Gastrointestinal pain [Recovered/Resolved]
  - Headache [Recovered/Resolved]
  - Irritability [Recovered/Resolved]
  - Insomnia [Recovered/Resolved]
  - Nausea [Recovered/Resolved]
  - Panic reaction [Recovered/Resolved]
  - Paraesthesia [Recovered/Resolved]
